FAERS Safety Report 5706178-1 (Version None)
Quarter: 2008Q2

REPORT INFORMATION
  Report Type: 
  Country: None (occurrence: None)
  Receive Date: 20080415
  Receipt Date: 20080403
  Transmission Date: 20081010
  Serious: Yes (Other)
  Sender: FDA-Public Use
  Company Number: SE-PFIZER INC-2008030001

PATIENT
  Age: 26 Year
  Sex: Male

DRUGS (2)
  1. LYRICA [Suspect]
     Indication: ANXIETY
  2. LYRICA [Suspect]
     Indication: DEPRESSION

REACTIONS (1)
  - DRUG ABUSE [None]
